FAERS Safety Report 6510065-9 (Version None)
Quarter: 2009Q4

REPORT INFORMATION
  Report Type: 
  Country: None (occurrence: None)
  Receive Date: 20091222
  Receipt Date: 20090923
  Transmission Date: 20100525
  Serious: No
  Sender: FDA-Public Use
  Company Number: US-BAUSCH-2009BL004819

PATIENT

DRUGS (4)
  1. BESIVANCE [Suspect]
     Indication: ULCERATIVE KERATITIS
     Route: 047
     Dates: start: 20090101, end: 20090101
  2. BESIVANCE [Suspect]
     Indication: OFF LABEL USE
     Route: 047
     Dates: start: 20090101, end: 20090101
  3. BESIVANCE [Suspect]
     Route: 047
     Dates: start: 20090101, end: 20090101
  4. BESIVANCE [Suspect]
     Route: 047
     Dates: start: 20090101, end: 20090101

REACTIONS (2)
  - EYE INFLAMMATION [None]
  - OCULAR HYPERAEMIA [None]
